FAERS Safety Report 23423649 (Version 1)
Quarter: 2024Q1

REPORT INFORMATION
  Report Type: Spontaneous
  Country: US (occurrence: US)
  Receive Date: 20240119
  Receipt Date: 20240119
  Transmission Date: 20240409
  Serious: No
  Sender: FDA-Public Use
  Company Number: US-GE HEALTHCARE-2024CSU000241

PATIENT
  Age: 52 Year
  Sex: Female
  Weight: 113 kg

DRUGS (20)
  1. CERIANNA [Suspect]
     Active Substance: FLUOROESTRADIOL F-18
     Indication: Positron emission tomogram
     Dosage: 218.3 MBQ, TOTAL
     Route: 065
     Dates: start: 20240103, end: 20240103
  2. ENHERTU [Concomitant]
     Active Substance: FAM-TRASTUZUMAB DERUXTECAN-NXKI
     Indication: Chemotherapy
     Dosage: 5.4 MG/KG
     Dates: start: 20240103, end: 20240103
  3. AMLODIPINE [Concomitant]
     Active Substance: AMLODIPINE BESYLATE
     Dosage: 10 MG, QD
  4. CARVEDILOL [Concomitant]
     Active Substance: CARVEDILOL
     Dosage: 25 MG, BID
  5. FERROUS SULFATE [Concomitant]
     Active Substance: FERROUS SULFATE
     Dosage: 325 MG, QD
  6. GABAPENTIN [Concomitant]
     Active Substance: GABAPENTIN
     Dosage: 300 MG, TID
  7. ROBITUSSIN AC [Concomitant]
     Active Substance: CODEINE PHOSPHATE\GUAIFENESIN
     Indication: Cough
     Dosage: 100-10 MG/5 ML, AS NEEDED
  8. APRESOLINE HYDROCHLORIDE [Concomitant]
     Active Substance: HYDRALAZINE HYDROCHLORIDE
     Dosage: 50 MG, QD
  9. HYDROCHLOROTHIAZIDE [Concomitant]
     Active Substance: HYDROCHLOROTHIAZIDE
     Indication: Hypertension
     Dosage: 50 MG, BID
  10. DILAUDID [Concomitant]
     Active Substance: HYDROMORPHONE HYDROCHLORIDE
     Indication: Pain
     Dosage: 2 MG, EVERY 4 HOURS AS NEEDED
  11. EMLA [Concomitant]
     Active Substance: LIDOCAINE\PRILOCAINE
     Indication: Local anaesthesia
     Dosage: BEFORE POST ACCESS
  12. MIRTAZAPINE [Concomitant]
     Active Substance: MIRTAZAPINE
     Dosage: 15 MG, QD
  13. METHOCARBAMOL [Concomitant]
     Active Substance: METHOCARBAMOL
     Dosage: 500 MG, 4 DAILY
  14. WARFARIN [Concomitant]
     Active Substance: WARFARIN
     Dosage: 5 MG, QD
  15. ZOFRAN [Concomitant]
     Active Substance: ONDANSETRON HYDROCHLORIDE
     Indication: Nausea
     Dosage: 8 MG, EVERY 8 HOURS AS NEEDED
  16. OXYCODONE AND ACETAMINOPHEN [Concomitant]
     Active Substance: ACETAMINOPHEN\OXYCODONE HYDROCHLORIDE
     Indication: Pain
     Dosage: 325 MG, EVERY 6 HOURS AS NEEDED
  17. PROTONIX [Concomitant]
     Active Substance: PANTOPRAZOLE SODIUM
     Dosage: 40 MG, QD
  18. KLOR-CON [Concomitant]
     Active Substance: POTASSIUM CHLORIDE
     Dosage: 10 MEQ, QD
  19. COMPAZINE [Concomitant]
     Active Substance: PROCHLORPERAZINE MALEATE
     Dosage: 10 MG, EVERY 8 HOURS AS NEEDED
  20. RIBOCICLIB [Concomitant]
     Active Substance: RIBOCICLIB
     Dosage: 400 MG, QD

REACTIONS (2)
  - Hot flush [Recovered/Resolved]
  - Hyperhidrosis [Recovered/Resolved]

NARRATIVE: CASE EVENT DATE: 20240103
